FAERS Safety Report 9434552 (Version 1)
Quarter: 2013Q3

REPORT INFORMATION
  Report Type: Spontaneous
  Country: US (occurrence: None)
  Receive Date: 20130731
  Receipt Date: 20130731
  Transmission Date: 20140515
  Serious: Yes (Other)
  Sender: FDA-Public Use
  Company Number: None

PATIENT
  Age: 27 Year
  Sex: Female
  Weight: 86.18 kg

DRUGS (1)
  1. CYMBALTA [Suspect]
     Indication: FIBROMYALGIA
     Dosage: 60MG ONCE DAILY PO
     Route: 048
     Dates: start: 20120201, end: 20120506

REACTIONS (8)
  - Suicidal ideation [None]
  - Depression [None]
  - Withdrawal syndrome [None]
  - Nausea [None]
  - Insomnia [None]
  - Lethargy [None]
  - Feeling abnormal [None]
  - Paraesthesia [None]
